FAERS Safety Report 25998742 (Version 2)
Quarter: 2025Q4

REPORT INFORMATION
  Report Type: Spontaneous
  Country: EU (occurrence: EU)
  Receive Date: 20251105
  Receipt Date: 20251113
  Transmission Date: 20260117
  Serious: Yes (Life-Threatening, Hospitalization, Other)
  Sender: AUROBINDO
  Company Number: EU-AUROBINDO-AUR-APL-2016-11863

PATIENT
  Age: 47 Year
  Sex: Female

DRUGS (9)
  1. SIMVASTATIN [Interacting]
     Active Substance: SIMVASTATIN
     Indication: Hypercholesterolaemia
     Dosage: 80 MG, ONCE A DAY (FOR SEVERAL YEARS)
     Route: 065
     Dates: start: 20100101, end: 20150119
  2. ITRACONAZOLE [Interacting]
     Active Substance: ITRACONAZOLE
     Indication: Rash
     Dosage: 100 MG, ONCE A DAY
     Route: 065
     Dates: start: 20141217
  3. ITRACONAZOLE [Interacting]
     Active Substance: ITRACONAZOLE
     Indication: Fungal infection
     Dosage: 100 MILLIGRAM
     Route: 065
  4. ITRACONAZOLE [Interacting]
     Active Substance: ITRACONAZOLE
     Indication: Fungal skin infection
  5. METFORMIN [Concomitant]
     Active Substance: METFORMIN HYDROCHLORIDE
     Indication: Type 2 diabetes mellitus
     Dosage: 500 MG, TWO TIMES A DAY
     Route: 065
  6. METFORMIN [Concomitant]
     Active Substance: METFORMIN HYDROCHLORIDE
     Dosage: FOR SEVERAL YEARS
     Route: 065
  7. METFORMIN [Concomitant]
     Active Substance: METFORMIN HYDROCHLORIDE
     Dosage: 1000 MILLIGRAM (FOR SEVERAL YEARS)
     Route: 065
  8. PREGABALIN [Concomitant]
     Active Substance: PREGABALIN
     Indication: Neuralgia
     Dosage: 150 MG, TWO TIMES A DAY
     Route: 065
  9. PREGABALIN [Concomitant]
     Active Substance: PREGABALIN
     Dosage: 300 MILLIGRAM
     Route: 065

REACTIONS (8)
  - Rhabdomyolysis [Recovered/Resolved]
  - Labelled drug-drug interaction medication error [Recovering/Resolving]
  - Drug interaction [Recovered/Resolved]
  - Myalgia [Recovered/Resolved]
  - Myoglobin blood increased [Recovered/Resolved]
  - Blood creatine phosphokinase increased [Recovered/Resolved]
  - Tenderness [Recovered/Resolved]
  - Muscular weakness [Recovered/Resolved]
